FAERS Safety Report 19493589 (Version 4)
Quarter: 2025Q3

REPORT INFORMATION
  Report Type: Report from Study
  Country: CA (occurrence: CA)
  Receive Date: 20210705
  Receipt Date: 20250922
  Transmission Date: 20251020
  Serious: Yes (Other)
  Sender: PFIZER
  Company Number: CA-PFIZER INC-2021754359

PATIENT
  Age: 28 Year
  Sex: Female
  Weight: 79 kg

DRUGS (79)
  1. RITUXIMAB [Suspect]
     Active Substance: RITUXIMAB
     Indication: Rheumatoid arthritis
     Route: 042
  2. RITUXIMAB [Suspect]
     Active Substance: RITUXIMAB
     Indication: Immunoglobulin G4 related disease
     Route: 042
  3. RITUXIMAB [Suspect]
     Active Substance: RITUXIMAB
     Route: 042
  4. RITUXIMAB [Suspect]
     Active Substance: RITUXIMAB
     Route: 042
  5. RITUXIMAB [Suspect]
     Active Substance: RITUXIMAB
     Route: 042
  6. RITUXIMAB [Suspect]
     Active Substance: RITUXIMAB
     Route: 042
  7. RITUXIMAB [Suspect]
     Active Substance: RITUXIMAB
     Route: 042
  8. RITUXIMAB [Suspect]
     Active Substance: RITUXIMAB
     Route: 042
  9. RITUXIMAB [Suspect]
     Active Substance: RITUXIMAB
  10. RITUXIMAB [Suspect]
     Active Substance: RITUXIMAB
     Route: 042
  11. RITUXIMAB [Suspect]
     Active Substance: RITUXIMAB
     Route: 042
  12. RITUXIMAB [Suspect]
     Active Substance: RITUXIMAB
     Route: 042
  13. RITUXIMAB [Suspect]
     Active Substance: RITUXIMAB
     Route: 042
  14. RITUXIMAB [Suspect]
     Active Substance: RITUXIMAB
     Route: 042
  15. RITUXIMAB [Suspect]
     Active Substance: RITUXIMAB
     Route: 042
  16. ACTIVASE [Concomitant]
     Active Substance: ALTEPLASE
     Route: 065
  17. ACETAMINOPHEN [Concomitant]
     Active Substance: ACETAMINOPHEN
     Indication: Premedication
     Route: 048
  18. ACETAMINOPHEN [Concomitant]
     Active Substance: ACETAMINOPHEN
     Route: 048
  19. ACETAMINOPHEN [Concomitant]
     Active Substance: ACETAMINOPHEN
     Route: 048
  20. ACETAMINOPHEN [Concomitant]
     Active Substance: ACETAMINOPHEN
     Route: 048
  21. ACETAMINOPHEN [Concomitant]
     Active Substance: ACETAMINOPHEN
     Route: 048
  22. ACETAMINOPHEN [Concomitant]
     Active Substance: ACETAMINOPHEN
     Route: 048
  23. ACETAMINOPHEN [Concomitant]
     Active Substance: ACETAMINOPHEN
     Route: 048
  24. ACETAMINOPHEN [Concomitant]
     Active Substance: ACETAMINOPHEN
     Route: 048
  25. ACETAMINOPHEN [Concomitant]
     Active Substance: ACETAMINOPHEN
     Route: 048
  26. ACYCLOVIR [Concomitant]
     Active Substance: ACYCLOVIR
  27. ADVAIR HFA [Concomitant]
     Active Substance: FLUTICASONE PROPIONATE\SALMETEROL XINAFOATE
  28. AERIUS (DESLORATADINE) [Concomitant]
     Active Substance: DESLORATADINE
     Route: 048
  29. AERIUS (DESLORATADINE) [Concomitant]
     Active Substance: DESLORATADINE
     Route: 048
  30. AERIUS (DESLORATADINE) [Concomitant]
     Active Substance: DESLORATADINE
     Route: 048
  31. AERIUS (DESLORATADINE) [Concomitant]
     Active Substance: DESLORATADINE
     Route: 042
  32. ATORVASTATIN [Concomitant]
     Active Substance: ATORVASTATIN
     Route: 048
  33. BENADRYL [Concomitant]
     Active Substance: DIPHENHYDRAMINE HYDROCHLORIDE
     Route: 042
  34. BENADRYL [Concomitant]
     Active Substance: DIPHENHYDRAMINE HYDROCHLORIDE
     Route: 042
  35. BENADRYL [Concomitant]
     Active Substance: DIPHENHYDRAMINE HYDROCHLORIDE
     Route: 042
  36. BENADRYL [Concomitant]
     Active Substance: DIPHENHYDRAMINE HYDROCHLORIDE
     Route: 042
  37. BENADRYL [Concomitant]
     Active Substance: DIPHENHYDRAMINE HYDROCHLORIDE
     Route: 048
  38. BISACODYL [Concomitant]
     Active Substance: BISACODYL
  39. CARBOXYMETHYLCELLULOSE [Concomitant]
     Active Substance: CARBOXYMETHYLCELLULOSE
  40. COLACE [Concomitant]
     Active Substance: DOCUSATE SODIUM
  41. DALTEPARIN SODIUM [Concomitant]
     Active Substance: DALTEPARIN SODIUM
  42. DIMENHYDRINATE [Concomitant]
     Active Substance: DIMENHYDRINATE
  43. DIPHENHYDRAMINE [Concomitant]
     Active Substance: DIPHENHYDRAMINE
     Indication: Premedication
     Route: 042
  44. DIPHENHYDRAMINE [Concomitant]
     Active Substance: DIPHENHYDRAMINE
     Route: 042
  45. DIPHENHYDRAMINE [Concomitant]
     Active Substance: DIPHENHYDRAMINE
     Route: 042
  46. DIPHENHYDRAMINE [Concomitant]
     Active Substance: DIPHENHYDRAMINE
     Route: 042
  47. DIPHENHYDRAMINE [Concomitant]
     Active Substance: DIPHENHYDRAMINE
     Route: 042
  48. DIPHENHYDRAMINE [Concomitant]
     Active Substance: DIPHENHYDRAMINE
     Indication: Premedication
     Route: 048
  49. ERYTHROMYCIN [Concomitant]
     Active Substance: ERYTHROMYCIN
  50. ESTRADIOL [Concomitant]
     Active Substance: ESTRADIOL
  51. FAMOTIDINE [Concomitant]
     Active Substance: FAMOTIDINE
     Indication: Premedication
     Route: 042
  52. FUROSEMIDE [Concomitant]
     Active Substance: FUROSEMIDE
     Route: 065
  53. GRAVOL [Concomitant]
     Active Substance: DIMENHYDRINATE
     Indication: Nausea
     Route: 042
  54. GRAVOL [Concomitant]
     Active Substance: DIMENHYDRINATE
     Route: 042
  55. GRAVOL [Concomitant]
     Active Substance: DIMENHYDRINATE
     Route: 042
  56. HYDROMORPHONE [Concomitant]
     Active Substance: HYDROMORPHONE
  57. LACTULOSE [Concomitant]
     Active Substance: LACTULOSE
  58. LEVOFLOXACIN [Concomitant]
     Active Substance: LEVOFLOXACIN
  59. LORAZEPAM [Concomitant]
     Active Substance: LORAZEPAM
     Route: 065
  60. POLYETHYLENE GLYCOL 400\PROPYLENE GLYCOL [Concomitant]
     Active Substance: POLYETHYLENE GLYCOL 400\PROPYLENE GLYCOL
  61. METHYLPREDNISOLONE [Concomitant]
     Active Substance: METHYLPREDNISOLONE
     Indication: Premedication
     Route: 042
  62. METHYLPREDNISOLONE [Concomitant]
     Active Substance: METHYLPREDNISOLONE
     Route: 042
  63. METHYLPREDNISOLONE [Concomitant]
     Active Substance: METHYLPREDNISOLONE
     Route: 042
  64. METHYLPREDNISOLONE [Concomitant]
     Active Substance: METHYLPREDNISOLONE
     Route: 042
  65. METHYLPREDNISOLONE [Concomitant]
     Active Substance: METHYLPREDNISOLONE
     Route: 042
  66. METHYLPREDNISOLONE [Concomitant]
     Active Substance: METHYLPREDNISOLONE
     Route: 042
  67. METOCLOPRAMIDE HYDROCHLORIDE [Concomitant]
     Active Substance: METOCLOPRAMIDE HYDROCHLORIDE
     Indication: Premedication
     Route: 042
  68. METRONIDAZOLE [Concomitant]
     Active Substance: METRONIDAZOLE
  69. MIRTAZAPINE [Concomitant]
     Active Substance: MIRTAZAPINE
  70. MOMETASONE [Concomitant]
     Active Substance: MOMETASONE
  71. MONTELUKAST [Concomitant]
     Active Substance: MONTELUKAST
  72. NALOXONE [Concomitant]
     Active Substance: NALOXONE
     Route: 065
  73. ONDANSETRON [Concomitant]
     Active Substance: ONDANSETRON
     Route: 048
  74. ONDANSETRON [Concomitant]
     Active Substance: ONDANSETRON
     Route: 048
  75. PANTOPRAZOLE [Concomitant]
     Active Substance: PANTOPRAZOLE
  76. PREDNISONE [Concomitant]
     Active Substance: PREDNISONE
  77. ALBUTEROL [Concomitant]
     Active Substance: ALBUTEROL
  78. SPIRONOLACTONE [Concomitant]
     Active Substance: SPIRONOLACTONE
  79. VALSARTAN [Concomitant]
     Active Substance: VALSARTAN

REACTIONS (7)
  - Flushing [Recovered/Resolved]
  - Infusion related reaction [Recovered/Resolved]
  - Nausea [Recovered/Resolved]
  - Pruritus [Recovered/Resolved]
  - Weight increased [Recovered/Resolved]
  - Abdominal pain [Recovered/Resolved]
  - Off label use [Recovered/Resolved]
